FAERS Safety Report 5520747-3 (Version None)
Quarter: 2007Q4

REPORT INFORMATION
  Report Type: 
  Country: None (occurrence: None)
  Receive Date: 20071119
  Receipt Date: 20071106
  Transmission Date: 20080405
  Serious: Yes (Other)
  Sender: FDA-Public Use
  Company Number: PL-PFIZER INC-2007095605

PATIENT
  Sex: Female

DRUGS (1)
  1. VIRACEPT [Suspect]
     Indication: HIV INFECTION

REACTIONS (1)
  - ABORTION SPONTANEOUS [None]
